FAERS Safety Report 8598478-5 (Version None)
Quarter: 2012Q3

REPORT INFORMATION
  Report Type: 
  Country: None (occurrence: None)
  Receive Date: 20120816
  Receipt Date: 20120810
  Transmission Date: 20120928
  Serious: Yes (Hospitalization, Other)
  Sender: FDA-Public Use
  Company Number: PHEH2012US015894

PATIENT
  Age: 11 Year
  Sex: Male
  Weight: 27.7 kg

DRUGS (1)
  1. ILARIS [Suspect]
     Indication: MUCKLE-WELLS SYNDROME
     Dosage: 150 MG, Q8 WEEKS
     Route: 058
     Dates: start: 20110901

REACTIONS (4)
  - GASTROINTESTINAL OBSTRUCTION [None]
  - VOMITING [None]
  - ABDOMINAL PAIN [None]
  - PYREXIA [None]
